FAERS Safety Report 5464977-8 (Version None)
Quarter: 2007Q3

REPORT INFORMATION
  Report Type: 
  Country: None (occurrence: None)
  Receive Date: 20070921
  Receipt Date: 20070914
  Transmission Date: 20080115
  Serious: Yes (Other)
  Sender: FDA-Public Use
  Company Number: US-PFIZER INC-2007077801

PATIENT
  Sex: Male

DRUGS (11)
  1. GEODON [Suspect]
     Indication: SCHIZOPHRENIA, PARANOID TYPE
  2. KEPPRA [Concomitant]
  3. BENZTROPINE MESYLATE [Concomitant]
  4. LOPERAMIDE HCL [Concomitant]
  5. LORAZEPAM [Concomitant]
  6. MAGNESIUM SULFATE [Concomitant]
  7. OLANZAPINE [Concomitant]
  8. RANITIDINE HYDROCHLORIDE [Concomitant]
  9. RISPERIDONE [Concomitant]
  10. VALPROIC ACID [Concomitant]
  11. VERAPAMIL [Concomitant]

REACTIONS (3)
  - COLONIC PSEUDO-OBSTRUCTION [None]
  - INTESTINAL OBSTRUCTION [None]
  - OVERDOSE [None]
